APPROVED DRUG PRODUCT: QELBREE
Active Ingredient: VILOXAZINE HYDROCHLORIDE
Strength: EQ 100MG BASE
Dosage Form/Route: CAPSULE, EXTENDED RELEASE;ORAL
Application: N211964 | Product #001
Applicant: SUPERNUS PHARMACEUTICALS INC
Approved: Apr 2, 2021 | RLD: Yes | RS: No | Type: RX

PATENTS:
Patent 12121523 | Expires: Sep 4, 2029
Patent 11458143 | Expires: Sep 4, 2029
Patent 11324753 | Expires: Sep 4, 2029
Patent 9603853 | Expires: Feb 7, 2033
Patent 9358204 | Expires: Feb 7, 2033
Patent 9662338 | Expires: Apr 2, 2035

EXCLUSIVITY:
Code: NCE | Date: Apr 2, 2026